FAERS Safety Report 9859863 (Version 2)
Quarter: 2014Q1

REPORT INFORMATION
  Report Type: Spontaneous
  Country: US (occurrence: US)
  Receive Date: 20140131
  Receipt Date: 20140207
  Transmission Date: 20141002
  Serious: Yes (Hospitalization)
  Sender: FDA-Public Use
  Company Number: ALCN2014US000874

PATIENT
  Sex: Female
  Weight: 68.27 kg

DRUGS (5)
  1. LATANOPROST [Suspect]
     Indication: GLAUCOMA
     Dosage: 1 GTT, QHS
     Route: 047
     Dates: start: 2011
  2. CLONIDINE [Concomitant]
     Indication: HYPERTENSION
     Dosage: 2 MG, QD
     Route: 048
  3. AMLOPINE [Concomitant]
     Indication: HYPERTENSION
     Dosage: UNK MG, QD
     Route: 048
  4. LIPITOR [Concomitant]
     Indication: BLOOD CHOLESTEROL INCREASED
     Dosage: UNK MG, QD
     Route: 048
  5. AMBIEN [Concomitant]
     Indication: INSOMNIA
     Dosage: UNK
     Route: 048

REACTIONS (2)
  - Hypertension [Recovered/Resolved]
  - Epistaxis [Recovered/Resolved]
